FAERS Safety Report 22209895 (Version 1)
Quarter: 2023Q2

REPORT INFORMATION
  Report Type: Spontaneous
  Country: CA (occurrence: CA)
  Receive Date: 20230414
  Receipt Date: 20230414
  Transmission Date: 20230722
  Serious: Yes (Other)
  Sender: FDA-Public Use
  Company Number: CA-CELLTRION INC.-2023CA007559

PATIENT

DRUGS (4)
  1. INFLIXIMAB [Suspect]
     Active Substance: INFLIXIMAB
     Indication: Rheumatoid arthritis
     Dosage: WEEKS-1 WEEK
     Route: 058
     Dates: start: 20220131
  2. INFLIXIMAB [Suspect]
     Active Substance: INFLIXIMAB
     Indication: Scleritis
  3. PREDNISONE [Concomitant]
     Active Substance: PREDNISONE
     Dosage: 40MG TAPERING 5MG WEEKLY
  4. METHOTREXATE [Concomitant]
     Active Substance: METHOTREXATE
     Dosage: 20MG WEEKLY FOR APPROX. 4-5 YEARS

REACTIONS (4)
  - Rheumatoid arthritis [Not Recovered/Not Resolved]
  - Scleritis [Not Recovered/Not Resolved]
  - Off label use [Unknown]
  - Off label use [Unknown]
